FAERS Safety Report 7933325 (Version 3)
Quarter: 2013Q4

REPORT INFORMATION
  Report Type: Spontaneous
  Country: US (occurrence: US)
  Receive Date: 20110506
  Receipt Date: 20131220
  Transmission Date: 20140711
  Serious: Yes (Other)
  Sender: FDA-Public Use
  Company Number: US-BAYER-2011-038436

PATIENT
  Sex: Female
  Weight: 61 kg

DRUGS (7)
  1. YAZ [Suspect]
     Indication: CONTRACEPTION
     Dosage: UNK
     Dates: start: 2003, end: 2009
  2. YASMIN [Suspect]
     Indication: CONTRACEPTION
     Dosage: UNK
     Dates: start: 2003, end: 2009
  3. HYOSCYAMINE [Concomitant]
     Dosage: 0.125 MG, UNK
     Dates: start: 20080602
  4. PROCHLORPERAZINE [Concomitant]
     Dosage: 10 MG, UNK
     Dates: start: 20080718
  5. OXYCODONE/APAP [Concomitant]
     Dosage: 5MG-325MG
     Dates: start: 20080718
  6. NEXIUM [Concomitant]
     Dosage: 40 MG, UNK
     Dates: start: 20080718
  7. ZANTAC [Concomitant]
     Dosage: UNK
     Dates: start: 20080806

REACTIONS (6)
  - Gallbladder injury [None]
  - Biliary dyskinesia [None]
  - Anxiety [None]
  - Anhedonia [None]
  - Pain [None]
  - Cholecystitis [None]
